FAERS Safety Report 15950736 (Version 1)
Quarter: 2019Q1

REPORT INFORMATION
  Report Type: Spontaneous
  Country: US (occurrence: US)
  Receive Date: 20190212
  Receipt Date: 20190212
  Transmission Date: 20190417
  Serious: No
  Sender: FDA-Public Use
  Company Number: US-PFIZER INC-2019059596

PATIENT
  Age: 60 Year
  Sex: Female
  Weight: 155.3 kg

DRUGS (6)
  1. TIKOSYN [Suspect]
     Active Substance: DOFETILIDE
     Indication: ATRIAL FIBRILLATION
     Dosage: 500 MG, UNK
  2. TIKOSYN [Suspect]
     Active Substance: DOFETILIDE
     Indication: OBESITY
  3. TIKOSYN [Suspect]
     Active Substance: DOFETILIDE
     Indication: ANTICOAGULANT THERAPY
  4. TIKOSYN [Suspect]
     Active Substance: DOFETILIDE
     Indication: HYPOTHYROIDISM
  5. TIKOSYN [Suspect]
     Active Substance: DOFETILIDE
     Indication: PALPITATIONS
     Dosage: 250 UG, 2X/DAY
     Route: 048
  6. TIKOSYN [Suspect]
     Active Substance: DOFETILIDE
     Indication: SLEEP APNOEA SYNDROME

REACTIONS (5)
  - Dyspnoea [Unknown]
  - Fatigue [Unknown]
  - Palpitations [Unknown]
  - Drug ineffective [Unknown]
  - Dizziness [Unknown]
